FAERS Safety Report 19402131 (Version 1)
Quarter: 2021Q2

REPORT INFORMATION
  Report Type: Spontaneous
  Country: GB (occurrence: GB)
  Receive Date: 20210610
  Receipt Date: 20210610
  Transmission Date: 20210717
  Serious: Yes (Hospitalization, Other)
  Sender: FDA-Public Use
  Company Number: GB-TEVA-2021-GB-1919230

PATIENT
  Age: 26 Year
  Sex: Female
  Weight: 65 kg

DRUGS (3)
  1. FEXOFENADINE [Suspect]
     Active Substance: FEXOFENADINE HYDROCHLORIDE
     Indication: RASH
     Dosage: 120 MG AND INCREASED TO 180 MG
     Route: 065
  2. BECLOMETHASONE [Concomitant]
     Active Substance: BECLOMETHASONE
  3. VENLAFAXINE [Concomitant]
     Active Substance: VENLAFAXINE HYDROCHLORIDE
     Indication: DEPRESSION
     Dates: start: 20201001

REACTIONS (4)
  - Rash [Not Recovered/Not Resolved]
  - Lip swelling [Recovered/Resolved]
  - Rash [Not Recovered/Not Resolved]
  - Peripheral swelling [Recovering/Resolving]

NARRATIVE: CASE EVENT DATE: 20210414
